FAERS Safety Report 10016701 (Version 2)
Quarter: 2014Q2

REPORT INFORMATION
  Report Type: Spontaneous
  Country: AT (occurrence: AT)
  Receive Date: 20140318
  Receipt Date: 20140409
  Transmission Date: 20141212
  Serious: Yes (Other)
  Sender: FDA-Public Use
  Company Number: AT-ROCHE-1365674

PATIENT
  Age: 56 Year
  Sex: Male
  Weight: 80 kg

DRUGS (4)
  1. ROACTEMRA [Suspect]
     Indication: RHEUMATOID ARTHRITIS
     Route: 042
     Dates: start: 201206, end: 201402
  2. TRAMAL [Suspect]
     Indication: BACK PAIN
     Dosage: 1-0-1
     Route: 065
  3. CORTISON [Suspect]
     Indication: PRODUCT USED FOR UNKNOWN INDICATION
     Route: 065
  4. EBETREXAT [Concomitant]

REACTIONS (2)
  - Large intestine perforation [Recovered/Resolved]
  - Diverticulitis [Recovered/Resolved]
